FAERS Safety Report 12220950 (Version 4)
Quarter: 2016Q2

REPORT INFORMATION
  Report Type: Spontaneous
  Country: US (occurrence: US)
  Receive Date: 20160330
  Receipt Date: 20160613
  Transmission Date: 20160815
  Serious: Yes (Other)
  Sender: FDA-Public Use
  Company Number: US-SHIONOGI, INC.-2016000400

PATIENT
  Age: 65 Year
  Sex: Female

DRUGS (12)
  1. OSPHENA [Suspect]
     Active Substance: OSPEMIFENE
     Indication: ATROPHIC VULVOVAGINITIS
     Dosage: 60 MG, UNK
     Route: 048
     Dates: start: 201404, end: 201507
  2. CLOBETASOL [Concomitant]
     Active Substance: CLOBETASOL
     Indication: LICHEN SCLEROSUS
     Dosage: UNK
     Route: 065
  3. HYDROCHLOROTHIAZIDE. [Concomitant]
     Active Substance: HYDROCHLOROTHIAZIDE
     Indication: PRODUCT USED FOR UNKNOWN INDICATION
     Dosage: 12.5 MG, UNK
     Route: 065
  4. OSPHENA [Suspect]
     Active Substance: OSPEMIFENE
     Indication: VULVOVAGINAL DRYNESS
     Dosage: UNK
     Route: 048
     Dates: start: 20150929, end: 20160309
  5. VENLAFAXINE [Concomitant]
     Active Substance: VENLAFAXINE HYDROCHLORIDE
     Indication: PRODUCT USED FOR UNKNOWN INDICATION
     Dosage: ER, 75 MG, UNK
     Route: 065
  6. OSPHENA [Suspect]
     Active Substance: OSPEMIFENE
     Indication: OFF LABEL USE
  7. ARESTIN [Concomitant]
     Active Substance: MINOCYCLINE HYDROCHLORIDE
     Indication: DENTAL CARE
     Dosage: 1 MG, UNK
     Route: 065
  8. GLIPIZIDE. [Concomitant]
     Active Substance: GLIPIZIDE
     Indication: PRODUCT USED FOR UNKNOWN INDICATION
     Dosage: ER, 5 MG, UNK
     Route: 065
  9. BYDUREON [Concomitant]
     Active Substance: EXENATIDE
     Indication: DIABETES MELLITUS
     Dosage: 2MG/0.65 ML PER INJECTION
     Route: 058
  10. LISINOPRIL. [Concomitant]
     Active Substance: LISINOPRIL
     Indication: PRODUCT USED FOR UNKNOWN INDICATION
     Dosage: 40 MG, UNK
     Route: 065
  11. LEVOTHYROXINE. [Concomitant]
     Active Substance: LEVOTHYROXINE
     Indication: PRODUCT USED FOR UNKNOWN INDICATION
     Dosage: 137 ?G, UNK
     Route: 065
  12. ESTRACE [Suspect]
     Active Substance: ESTRADIOL
     Indication: PRODUCT USED FOR UNKNOWN INDICATION
     Dosage: UNK
     Route: 065
     Dates: start: 201507

REACTIONS (4)
  - Endometrial adenocarcinoma [Unknown]
  - Off label use [Unknown]
  - Vaginal haemorrhage [Unknown]
  - Endometrial thickening [Unknown]

NARRATIVE: CASE EVENT DATE: 201404
